FAERS Safety Report 7105517-7 (Version None)
Quarter: 2010Q4

REPORT INFORMATION
  Report Type: 
  Country: None (occurrence: None)
  Receive Date: 20101116
  Receipt Date: 20101103
  Transmission Date: 20110411
  Serious: Yes (Hospitalization)
  Sender: FDA-Public Use
  Company Number: CH-PFIZER INC-CH-WYE-G06910410

PATIENT
  Age: 48 Year
  Sex: Male

DRUGS (12)
  1. TAZOBAC [Suspect]
     Indication: MEDIASTINAL ABSCESS
     Dosage: 4.5 G, 3X/DAY
     Route: 042
     Dates: start: 20100914, end: 20100920
  2. VANCOMYCIN [Suspect]
     Indication: MEDIASTINAL ABSCESS
     Dosage: 1 G, 1X/DAY
     Route: 042
     Dates: start: 20100919, end: 20100919
  3. NOVALGIN [Suspect]
     Dosage: 500 MG, 4X/DAY
     Route: 042
     Dates: start: 20100917, end: 20100920
  4. PANTOPRAZOLE SODIUM [Concomitant]
     Dosage: UNK
     Dates: start: 20100828
  5. DUPHALAC [Concomitant]
     Dosage: UNK
     Dates: start: 20100817
  6. HEPARIN [Concomitant]
     Dosage: UNK
  7. LASIX [Concomitant]
     Dosage: TREATMENT CONTINUES, UNSPECIFIED DIFFERENT DOSES ADMINISTERED
  8. TRIATEC [Concomitant]
     Dosage: 2.5MG FREQUENCY UNK, STOPPED ON 16 OR 17SEP2010
     Dates: start: 20100902, end: 20100901
  9. DAFALGAN [Concomitant]
     Dosage: UNK
  10. SEROQUEL [Concomitant]
     Indication: DELIRIUM
     Dosage: UNK
     Dates: start: 20100101
  11. HALDOL [Concomitant]
     Indication: DELIRIUM
     Dosage: UNK
     Dates: start: 20100101
  12. TORASEMIDE [Concomitant]
     Dosage: TREATMENT CONTINUES, UNSPECIFIED DIFFERENT DOSES ADMINISTERED

REACTIONS (3)
  - DRUG RASH WITH EOSINOPHILIA AND SYSTEMIC SYMPTOMS [None]
  - PRURITUS [None]
  - TUBULOINTERSTITIAL NEPHRITIS [None]
